FAERS Safety Report 9528532 (Version 3)
Quarter: 2014Q1

REPORT INFORMATION
  Report Type: Spontaneous
  Country: US (occurrence: US)
  Receive Date: 20130917
  Receipt Date: 20140320
  Transmission Date: 20141002
  Serious: Yes (Other)
  Sender: FDA-Public Use
  Company Number: US-009507513-1303USA007821

PATIENT
  Age: 54 Year
  Sex: Male
  Weight: 90.7 kg

DRUGS (6)
  1. VICTRELIS [Suspect]
     Indication: HEPATITIS C
     Dosage: 250 MG, UNK
     Route: 048
     Dates: start: 20120916, end: 2012
  2. COPEGUS [Suspect]
     Indication: HEPATITIS C
     Dosage: 200 MG, BID
     Route: 048
     Dates: start: 20120816, end: 20121023
  3. COPEGUS [Suspect]
     Dosage: 600 MG, 1 IN 12 HR
     Route: 048
     Dates: start: 20131001
  4. PEGINTERFERON ALFA-2A [Suspect]
     Indication: HEPATITIS C
     Dosage: 180 UG , 1 IN 1 WEEK
     Route: 058
     Dates: start: 20120816, end: 20121023
  5. PEGINTERFERON ALFA-2A [Suspect]
     Dosage: 180 MCG 1 IN 1 WEEK
     Route: 058
     Dates: start: 20131001
  6. TAMSULOSIN HYDROCHLORIDE [Concomitant]

REACTIONS (4)
  - Dysphagia [Recovered/Resolved]
  - Gastrooesophageal reflux disease [Recovered/Resolved]
  - Dyspnoea [Unknown]
  - Drug dose omission [Unknown]
